FAERS Safety Report 4695000-0 (Version None)
Quarter: 2005Q2

REPORT INFORMATION
  Report Type: 
  Country: None (occurrence: None)
  Receive Date: 20050617
  Receipt Date: 20050606
  Transmission Date: 20051028
  Serious: Yes (Hospitalization)
  Sender: FDA-Public Use
  Company Number: FR-2005-008428

PATIENT
  Age: 49 Year
  Sex: Female

DRUGS (1)
  1. ULTRAVIST 300 [Suspect]
     Indication: COMPUTERISED TOMOGRAM
     Dosage: 1 DOSE, INTRAVENOUS
     Route: 042
     Dates: start: 20050314, end: 20050315

REACTIONS (4)
  - ANAPHYLACTIC SHOCK [None]
  - HEADACHE [None]
  - LARYNGEAL DISCOMFORT [None]
  - RESPIRATORY DISORDER [None]
